FAERS Safety Report 8585219-0 (Version None)
Quarter: 2012Q3

REPORT INFORMATION
  Report Type: 
  Country: None (occurrence: None)
  Receive Date: 20120810
  Receipt Date: 20120801
  Transmission Date: 20120928
  Serious: Yes (Life-Threatening, Hospitalization)
  Sender: FDA-Public Use
  Company Number: DE-CELGENEUS-062-21660-12080230

PATIENT
  Age: 72 Year
  Sex: Female
  Weight: 82 kg

DRUGS (2)
  1. CAPECITABINE [Suspect]
     Route: 048
     Dates: start: 20120711
  2. ABRAXANE [Suspect]
     Route: 041
     Dates: start: 20120711

REACTIONS (1)
  - EMBOLISM [None]
